FAERS Safety Report 24960462 (Version 1)
Quarter: 2025Q1

REPORT INFORMATION
  Report Type: Spontaneous
  Country: RU (occurrence: RU)
  Receive Date: 20250212
  Receipt Date: 20250212
  Transmission Date: 20250409
  Serious: Yes (Other)
  Sender: AMGEN
  Company Number: RU-AMGEN-RUSSP2025024783

PATIENT

DRUGS (1)
  1. PROLIA [Suspect]
     Active Substance: DENOSUMAB
     Indication: Osteoporosis
     Route: 065

REACTIONS (9)
  - Spinal fracture [Unknown]
  - Lower limb fracture [Unknown]
  - Femur fracture [Unknown]
  - Pelvic fracture [Unknown]
  - Rheumatoid arthritis [Unknown]
  - Fracture [Unknown]
  - Forearm fracture [Unknown]
  - Rib fracture [Unknown]
  - Humerus fracture [Unknown]
